FAERS Safety Report 10960475 (Version 1)
Quarter: 2015Q1

REPORT INFORMATION
  Report Type: Spontaneous
  Country: CA (occurrence: None)
  Receive Date: 20150325
  Receipt Date: 20150325
  Transmission Date: 20150721
  Serious: Yes (Hospitalization)
  Sender: FDA-Public Use
  Company Number: CA-2015VAL000204

PATIENT
  Age: 58 Year
  Sex: Male

DRUGS (3)
  1. CARBAMAZEPINE (CARBAMAZEPINE) UNKNOWN [Suspect]
     Active Substance: CARBAMAZEPINE
     Indication: PRODUCT USED FOR UNKNOWN INDICATION
     Dosage: }14 G, SUSTAINED RELEASE, ONCE
  2. LORAZEPAM (LORAZEPAM) [Suspect]
     Active Substance: LORAZEPAM
     Indication: PRODUCT USED FOR UNKNOWN INDICATION
  3. ETHANOL (ETHANOL) [Suspect]
     Active Substance: ALCOHOL
     Indication: PRODUCT USED FOR UNKNOWN INDICATION

REACTIONS (6)
  - Ileus [None]
  - Neurological symptom [None]
  - Haemodialysis [None]
  - Toxicity to various agents [None]
  - Stupor [None]
  - Thrombocytopenia [None]
